FAERS Safety Report 14684408 (Version 4)
Quarter: 2018Q3

REPORT INFORMATION
  Report Type: Spontaneous
  Country: US (occurrence: US)
  Receive Date: 20180327
  Receipt Date: 20180709
  Transmission Date: 20181010
  Serious: Yes (Hospitalization, Other)
  Sender: FDA-Public Use
  Company Number: US-ROCHE-2095536

PATIENT
  Age: 67 Year
  Sex: Male

DRUGS (2)
  1. PREDNISONE. [Concomitant]
     Active Substance: PREDNISONE
     Indication: TEMPORAL ARTERITIS
     Dosage: FOR 4 WEEKS
     Route: 065
     Dates: start: 20170803
  2. OCREVUS [Suspect]
     Active Substance: OCRELIZUMAB
     Indication: MULTIPLE SCLEROSIS
     Route: 042
     Dates: start: 201707

REACTIONS (7)
  - Pulmonary embolism [Unknown]
  - Headache [Unknown]
  - Vision blurred [Unknown]
  - Pneumocystis jirovecii pneumonia [Recovered/Resolved]
  - Lymphocyte count decreased [Unknown]
  - Vascular pain [Unknown]
  - Upper respiratory tract infection [Recovered/Resolved]

NARRATIVE: CASE EVENT DATE: 201709
